FAERS Safety Report 6544653-0 (Version None)
Quarter: 2010Q1

REPORT INFORMATION
  Report Type: 
  Country: None (occurrence: None)
  Receive Date: 20100115
  Receipt Date: 20100106
  Transmission Date: 20100710
  Serious: Yes (Hospitalization)
  Sender: FDA-Public Use
  Company Number: CR10-0004

PATIENT
  Age: 55 Year
  Sex: Female
  Weight: 68.9467 kg

DRUGS (3)
  1. EPINEPHRINE [Suspect]
     Indication: ASTHMA
     Dosage: 054; 3-4 MONTHS AGO (LAST)
     Route: 055
  2. FELDENE [Concomitant]
  3. ATENOLOL (TENORETIC) [Concomitant]

REACTIONS (4)
  - CHEST PAIN [None]
  - CORONARY ARTERY STENOSIS [None]
  - PALPITATIONS [None]
  - TACHYCARDIA [None]
